FAERS Safety Report 20356714 (Version 1)
Quarter: 2022Q1

REPORT INFORMATION
  Report Type: Spontaneous
  Country: US (occurrence: None)
  Receive Date: 20220119
  Receipt Date: 20220119
  Transmission Date: 20220423
  Serious: Yes (unspecified)
  Sender: FDA-Public Use
  Company Number: None

PATIENT
  Age: 64 Year
  Sex: Male
  Weight: 108 kg

DRUGS (1)
  1. EVUSHELD [Suspect]
     Active Substance: CILGAVIMAB\TIXAGEVIMAB
     Indication: Chronic lymphocytic leukaemia
     Dosage: OTHER FREQUENCY : ONCE;?
     Route: 030
     Dates: start: 20220114, end: 20220114

REACTIONS (6)
  - Dizziness [None]
  - Feeling abnormal [None]
  - Blood pressure systolic decreased [None]
  - Blood glucose decreased [None]
  - Fatigue [None]
  - Injection related reaction [None]

NARRATIVE: CASE EVENT DATE: 20220114
